FAERS Safety Report 18843421 (Version 1)
Quarter: 2021Q1

REPORT INFORMATION
  Report Type: Report from Study
  Country: US (occurrence: US)
  Receive Date: 20210203
  Receipt Date: 20210203
  Transmission Date: 20210419
  Serious: No
  Sender: FDA-Public Use
  Company Number: US-EXELIXIS-CABO-20028630

PATIENT
  Sex: Female

DRUGS (3)
  1. CABOMETYX [Suspect]
     Active Substance: CABOZANTINIB S-MALATE
     Dosage: 20 MG, QD
     Route: 048
  2. CABOMETYX [Suspect]
     Active Substance: CABOZANTINIB S-MALATE
     Indication: RENAL CANCER
     Dosage: 60 MG
     Route: 048
  3. CABOMETYX [Suspect]
     Active Substance: CABOZANTINIB S-MALATE
     Dosage: 40 MG
     Route: 048

REACTIONS (8)
  - Headache [Recovering/Resolving]
  - Fatigue [Recovering/Resolving]
  - Blister [Recovering/Resolving]
  - Nausea [Unknown]
  - Burning sensation [Unknown]
  - Abdominal discomfort [Unknown]
  - Stomatitis [Recovering/Resolving]
  - Inappropriate schedule of product administration [Unknown]
